FAERS Safety Report 6542916-6 (Version None)
Quarter: 2010Q1

REPORT INFORMATION
  Report Type: 
  Country: None (occurrence: None)
  Receive Date: 20100114
  Receipt Date: 20100108
  Transmission Date: 20100710
  Serious: Yes (Hospitalization)
  Sender: FDA-Public Use
  Company Number: 2010SP001604

PATIENT
  Age: 11 Year
  Sex: Female
  Weight: 43 kg

DRUGS (4)
  1. NASONEX [Suspect]
     Indication: NASOPHARYNGITIS
     Route: 045
     Dates: start: 20091101, end: 20091220
  2. DESLORATADINE [Suspect]
     Indication: NASOPHARYNGITIS
     Dosage: ; PO
     Route: 048
     Dates: start: 20091101, end: 20091220
  3. AMANTADINE HCL [Suspect]
     Indication: NASOPHARYNGITIS
     Dosage: 1 DF; BID; PO
     Route: 048
     Dates: start: 20091215, end: 20091220
  4. RHINADVIL (CO-ADVIL) [Suspect]
     Indication: NASOPHARYNGITIS
     Dosage: ; PO
     Route: 048
     Dates: start: 20091215, end: 20091220

REACTIONS (2)
  - COMPLEX PARTIAL SEIZURES [None]
  - PAIN IN EXTREMITY [None]
